FAERS Safety Report 23810060 (Version 1)
Quarter: 2024Q2

REPORT INFORMATION
  Report Type: Spontaneous
  Country: GB (occurrence: GB)
  Receive Date: 20240502
  Receipt Date: 20240502
  Transmission Date: 20240716
  Serious: Yes (Other)
  Sender: FDA-Public Use
  Company Number: GB-JNJFOC-20240486386

PATIENT
  Age: 64 Year
  Sex: Male

DRUGS (1)
  1. SIMPONI [Suspect]
     Active Substance: GOLIMUMAB
     Indication: Rheumatoid arthritis
     Dosage: 50 MG/0.5 ML
     Route: 058

REACTIONS (5)
  - Rheumatoid arthritis [Unknown]
  - Gout [Unknown]
  - COVID-19 [Unknown]
  - Bronchitis [Unknown]
  - Malaise [Unknown]

NARRATIVE: CASE EVENT DATE: 20240101
